FAERS Safety Report 8861946 (Version 6)
Quarter: 2013Q2

REPORT INFORMATION
  Report Type: Spontaneous
  Country: US (occurrence: US)
  Receive Date: 20121025
  Receipt Date: 20130517
  Transmission Date: 20140414
  Serious: Yes (Other)
  Sender: FDA-Public Use
  Company Number: US-BRISTOL-MYERS SQUIBB COMPANY-17043233

PATIENT
  Age: 77 Year
  Sex: Female
  Weight: 70.29 kg

DRUGS (1)
  1. ORENCIA FOR INJ 250 MG/VIAL [Suspect]
     Indication: RHEUMATOID ARTHRITIS
     Dosage: INFUSION WAS ON:10OCT2012 LAST: 16APR13
     Route: 042

REACTIONS (6)
  - Synovial cyst [Unknown]
  - Arthritis [Unknown]
  - Drug ineffective [Unknown]
  - Psoriasis [Unknown]
  - Erythema [Not Recovered/Not Resolved]
  - Cough [Recovered/Resolved]
